FAERS Safety Report 14311789 (Version 1)
Quarter: 2017Q4

REPORT INFORMATION
  Report Type: Spontaneous
  Country: IT (occurrence: IT)
  Receive Date: 20171221
  Receipt Date: 20171221
  Transmission Date: 20180321
  Serious: Yes (Life-Threatening, Hospitalization, Other)
  Sender: FDA-Public Use
  Company Number: IT-CIPLA LTD.-2017IT24174

PATIENT

DRUGS (2)
  1. CARVEDILOL. [Suspect]
     Active Substance: CARVEDILOL
     Dosage: 25 MG, PER DAY, STARTED TO TAKE DILATREND 6.25 MG ALMOST 8 YEARS AGO
     Route: 065
  2. CARVEDILOL. [Suspect]
     Active Substance: CARVEDILOL
     Dosage: 18.75 MG, PER DAY, CURRENT DOSE;AFTER MEDICAL CONSULTATION WITH A CARDIOLOGIST,ADVISING HER TO TAKE
     Route: 065

REACTIONS (3)
  - Hypertension [Not Recovered/Not Resolved]
  - Prescription drug used without a prescription [Unknown]
  - Extrasystoles [Not Recovered/Not Resolved]
